FAERS Safety Report 9725245 (Version 1)
Quarter: 2013Q4

REPORT INFORMATION
  Report Type: Spontaneous
  Country: US (occurrence: None)
  Receive Date: 20131129
  Receipt Date: 20131129
  Transmission Date: 20140711
  Serious: Yes (Other)
  Sender: FDA-Public Use
  Company Number: SYM-2013-13082

PATIENT
  Age: 20 Year
  Sex: Female

DRUGS (1)
  1. SOLODYN [Suspect]
     Indication: PRODUCT USED FOR UNKNOWN INDICATION
     Dates: start: 20130813, end: 20131112

REACTIONS (6)
  - Papilloedema [None]
  - Papilloedema [None]
  - Intracranial pressure increased [None]
  - Strabismus [None]
  - Nerve compression [None]
  - VIth nerve disorder [None]
